FAERS Safety Report 5487032-X (Version None)
Quarter: 2007Q3

REPORT INFORMATION
  Report Type: 
  Country: None (occurrence: None)
  Receive Date: 20070925
  Receipt Date: 20070711
  Transmission Date: 20080115
  Serious: No
  Sender: FDA-Public Use
  Company Number: 2007US001632

PATIENT
  Age: 71 Year
  Sex: Male

DRUGS (8)
  1. VESICARE [Suspect]
     Indication: BLADDER SPASM
     Dosage: 10 MG, UID/QD, ORAL
     Route: 048
     Dates: start: 20070710
  2. PHENAZOPYRIDINE (PHENAZOPYRIDINE) [Concomitant]
  3. CELEBREX [Concomitant]
  4. QUINAPRIL HCL [Concomitant]
  5. LIPITOR [Concomitant]
  6. DYAZIDE [Concomitant]
  7. OMEPRAZOLE [Concomitant]
  8. MULTIVITAMIN (VITAMIN NOS) [Concomitant]

REACTIONS (1)
  - DRUG INEFFECTIVE [None]
